FAERS Safety Report 7377980-8 (Version None)
Quarter: 2011Q1

REPORT INFORMATION
  Report Type: 
  Country: None (occurrence: None)
  Receive Date: 20110328
  Receipt Date: 20110321
  Transmission Date: 20110831
  Serious: Yes (Hospitalization)
  Sender: FDA-Public Use
  Company Number: FR-ROCHE-763768

PATIENT
  Age: 70 Year
  Sex: Female

DRUGS (3)
  1. ROACTEMRA [Suspect]
     Route: 042
     Dates: start: 20100301
  2. CORTANCYL [Suspect]
     Route: 048
  3. ACTONEL [Suspect]
     Route: 048
     Dates: start: 20020101

REACTIONS (1)
  - FEMALE GENITAL TRACT FISTULA [None]
